FAERS Safety Report 10918010 (Version 2)
Quarter: 2015Q1

REPORT INFORMATION
  Report Type: Spontaneous
  Country: FR (occurrence: None)
  Receive Date: 20150311
  Receipt Date: 20150317
  Transmission Date: 20150721
  Serious: Yes (Other)
  Sender: FDA-Public Use
  Company Number: TPU2015-00079

PATIENT
  Age: 89 Year
  Sex: Female
  Weight: 64 kg

DRUGS (7)
  1. VERSATIS (LIDOCAINE PATCH 5%) (5 PERCENT, POULTICE OR PATCH) [Suspect]
     Active Substance: LIDOCAINE
     Indication: PAIN IN EXTREMITY
     Dosage: 1 PLASTER
     Route: 061
     Dates: start: 20150221, end: 20150225
  2. PROPRANOLOL [Concomitant]
     Active Substance: PROPRANOLOL\PROPRANOLOL HYDROCHLORIDE
  3. RABEPRAZOLE (RABEPRAZOLE) [Concomitant]
     Active Substance: RABEPRAZOLE
  4. DAFALGAN (PARACETAMOL) [Concomitant]
  5. PRAVASTATINE (PRAVASTATIN SODIUM) [Concomitant]
  6. LAMALINE (LAMALINE) [Concomitant]
  7. STILNOX (ZOLPIDEM TARTRATE) [Concomitant]

REACTIONS (1)
  - Anuria [None]

NARRATIVE: CASE EVENT DATE: 20150225
